FAERS Safety Report 6077647-2 (Version None)
Quarter: 2009Q1

REPORT INFORMATION
  Report Type: 
  Country: None (occurrence: None)
  Receive Date: 20090211
  Receipt Date: 20090128
  Transmission Date: 20090719
  Serious: Yes (Other)
  Sender: FDA-Public Use
  Company Number: 2009S1001638

PATIENT
  Age: 46 Year
  Sex: Female

DRUGS (1)
  1. SERTRALINE [Suspect]
     Indication: DEPRESSION
     Dosage: 50 MG; DAILY; ORAL
     Route: 048
     Dates: start: 20090109, end: 20090113

REACTIONS (6)
  - HYPERREFLEXIA [None]
  - HYPERTENSION [None]
  - MYALGIA [None]
  - NAUSEA [None]
  - PALPITATIONS [None]
  - TREMOR [None]
